FAERS Safety Report 12618627 (Version 1)
Quarter: 2016Q3

REPORT INFORMATION
  Report Type: Spontaneous
  Country: US (occurrence: US)
  Receive Date: 20160803
  Receipt Date: 20160803
  Transmission Date: 20161109
  Serious: No
  Sender: FDA-Public Use
  Company Number: US-ALLERGAN-1647526

PATIENT
  Age: 54 Year
  Sex: Male

DRUGS (1)
  1. KADIAN [Suspect]
     Active Substance: MORPHINE SULFATE
     Indication: BACK PAIN
     Dosage: UNK UNK, UNKNOWN
     Route: 065
     Dates: start: 2015, end: 2015

REACTIONS (2)
  - Drug effect incomplete [Unknown]
  - Drug ineffective [None]

NARRATIVE: CASE EVENT DATE: 2015
